FAERS Safety Report 6227474-8 (Version None)
Quarter: 2009Q2

REPORT INFORMATION
  Report Type: 
  Country: None (occurrence: None)
  Receive Date: 20090612
  Receipt Date: 20090602
  Transmission Date: 20091009
  Serious: Yes (Hospitalization)
  Sender: FDA-Public Use
  Company Number: PHHY2009FR21639

PATIENT
  Age: 70 Year
  Sex: Female

DRUGS (1)
  1. LAMISIL [Suspect]
     Dosage: 1 DF/DAY
     Dates: end: 20090228

REACTIONS (7)
  - ARTERIOSCLEROSIS [None]
  - C-REACTIVE PROTEIN INCREASED [None]
  - ERYTHEMA [None]
  - LEUKOCYTOCLASTIC VASCULITIS [None]
  - POLYARTERITIS NODOSA [None]
  - PURPURA [None]
  - WOUND [None]
